FAERS Safety Report 25287510 (Version 1)
Quarter: 2025Q2

REPORT INFORMATION
  Report Type: Spontaneous
  Country: DE (occurrence: DE)
  Receive Date: 20250509
  Receipt Date: 20250509
  Transmission Date: 20250716
  Serious: Yes (Hospitalization, Other)
  Sender: HETERO
  Company Number: DE-002147023-NVSC2020DE172683

PATIENT
  Sex: Female
  Weight: 72 kg

DRUGS (11)
  1. PREGABALIN [Suspect]
     Active Substance: PREGABALIN
     Indication: Product used for unknown indication
     Route: 048
  2. MIRTAZAPINE [Suspect]
     Active Substance: MIRTAZAPINE
     Indication: Product used for unknown indication
     Route: 048
  3. LETROZOLE [Suspect]
     Active Substance: LETROZOLE
     Indication: Breast cancer
     Route: 048
     Dates: start: 20200211
  4. ESCITALOPRAM [Suspect]
     Active Substance: ESCITALOPRAM OXALATE
     Indication: Product used for unknown indication
     Route: 048
  5. QUETIAPINE [Suspect]
     Active Substance: QUETIAPINE
     Indication: Product used for unknown indication
     Route: 048
  6. RIBOCICLIB [Suspect]
     Active Substance: RIBOCICLIB
     Indication: Breast cancer
     Route: 048
     Dates: start: 20200211, end: 20200307
  7. RIBOCICLIB [Suspect]
     Active Substance: RIBOCICLIB
     Route: 048
     Dates: start: 20200308, end: 20200617
  8. RIBOCICLIB [Suspect]
     Active Substance: RIBOCICLIB
     Route: 048
     Dates: start: 20200809, end: 20210528
  9. RIBOCICLIB [Suspect]
     Active Substance: RIBOCICLIB
     Route: 048
     Dates: start: 20201006, end: 20210509
  10. NALOXONE [Suspect]
     Active Substance: NALOXONE
     Indication: Product used for unknown indication
     Route: 048
  11. TILIDINE [Suspect]
     Active Substance: TILIDINE
     Indication: Product used for unknown indication
     Route: 048

REACTIONS (7)
  - Upper gastrointestinal haemorrhage [Recovered/Resolved]
  - Haematemesis [Recovered/Resolved]
  - Anaemia [Not Recovered/Not Resolved]
  - Leukopenia [Not Recovered/Not Resolved]
  - Electrocardiogram QT prolonged [Recovered/Resolved]
  - Diarrhoea [Recovered/Resolved]
  - Off label use [Unknown]

NARRATIVE: CASE EVENT DATE: 20200330
